FAERS Safety Report 7989973-8 (Version None)
Quarter: 2011Q4

REPORT INFORMATION
  Report Type: 
  Country: None (occurrence: None)
  Receive Date: 20111219
  Receipt Date: 20110608
  Transmission Date: 20120403
  Serious: No
  Sender: FDA-Public Use
  Company Number: US-ASTRAZENECA-2011SE34983

PATIENT
  Age: 65 Year
  Sex: Male
  Weight: 95.7 kg

DRUGS (7)
  1. CRESTOR [Suspect]
     Indication: HYPERCHOLESTEROLAEMIA
     Route: 048
     Dates: start: 20110201
  2. LISINOPRIL [Concomitant]
     Indication: HYPERTENSION
     Route: 048
     Dates: start: 19950101
  3. LIPITOR [Concomitant]
     Dates: start: 19950101, end: 20110201
  4. ZETIA [Concomitant]
     Dates: start: 19950101, end: 20110201
  5. PLAVIX [Concomitant]
     Dates: start: 20050101
  6. ATENOLOL [Concomitant]
     Indication: HYPERTENSION
     Route: 048
     Dates: start: 19950101
  7. TRICOR [Concomitant]
     Dates: start: 19950101

REACTIONS (2)
  - RENAL IMPAIRMENT [None]
  - ANAEMIA [None]
